FAERS Safety Report 10098138 (Version 2)
Quarter: 2014Q2

REPORT INFORMATION
  Report Type: Spontaneous
  Country: IT (occurrence: None)
  Receive Date: 20140421
  Receipt Date: 20140423
  Transmission Date: 20141212
  Serious: Yes (Hospitalization, Other)
  Sender: FDA-Public Use
  Company Number: AUR-APL-2014-04408

PATIENT
  Age: 83 Year
  Sex: Male

DRUGS (9)
  1. LEVOFLOXACIN [Suspect]
     Indication: ABSCESS
     Dosage: 500MG, 1 D) ORAL
     Route: 048
     Dates: start: 20140326, end: 20140327
  2. LEVOFLOXACIN [Suspect]
     Indication: HYPERPYREXIA
     Dosage: 500MG, 1 D) ORAL
     Route: 048
     Dates: start: 20140326, end: 20140327
  3. TAZOCIN (PIP/TAZO) [Concomitant]
  4. LASIX (FUROSEMIDE) [Concomitant]
  5. ARIXTRA (FONDAPARINUX SODIUM) [Concomitant]
  6. URBASON (METHYLPREDNISOLONE) [Concomitant]
  7. CARDICOR (BISOPROLOL FUMARATE) [Concomitant]
  8. LANOXIN (DIGOXIN) [Concomitant]
  9. PANTOPRAZOLE SODIUM (PANTOPRAZOLE SODIUM SESQUIHYDRATE) [Concomitant]

REACTIONS (3)
  - Delirium [None]
  - Delusion [None]
  - Confusional state [None]
